FAERS Safety Report 24711039 (Version 1)
Quarter: 2024Q4

REPORT INFORMATION
  Report Type: Report from Study
  Country: US (occurrence: US)
  Receive Date: 20241209
  Receipt Date: 20241209
  Transmission Date: 20250114
  Serious: Yes (Hospitalization)
  Sender: RECORDATI
  Company Number: US-SAMOHPHARM-2022002225

PATIENT

DRUGS (7)
  1. CYSTADANE [Suspect]
     Active Substance: BETAINE
     Indication: Methylmalonic acidaemia
     Dosage: 4 GRAM, QD
     Route: 048
     Dates: start: 20140911, end: 20190422
  2. CYSTADANE [Suspect]
     Active Substance: BETAINE
     Dosage: 4 GRAM, TID
     Route: 048
     Dates: start: 20190422
  3. HYDROXOCOBALAMIN [Concomitant]
     Active Substance: HYDROXOCOBALAMIN
     Indication: Hypovitaminosis
  4. CETIRIZINE [Concomitant]
     Active Substance: CETIRIZINE HYDROCHLORIDE
     Indication: Seasonal allergy
  5. KEPPRA [Concomitant]
     Active Substance: LEVETIRACETAM
     Indication: Seizure
  6. LEVOCARNITINE [Concomitant]
     Active Substance: LEVOCARNITINE
     Indication: Hypovitaminosis
  7. ALBUTEROL [Concomitant]
     Active Substance: ALBUTEROL
     Indication: Asthma
     Route: 045

REACTIONS (6)
  - Gastrointestinal disorder [Recovered/Resolved]
  - Vomiting [Recovered/Resolved]
  - Product dose omission issue [Recovered/Resolved]
  - Product use in unapproved indication [Recovered/Resolved]
  - Product use issue [Recovered/Resolved]
  - Underdose [Recovered/Resolved]

NARRATIVE: CASE EVENT DATE: 20140911
